FAERS Safety Report 5521912-1 (Version None)
Quarter: 2007Q4

REPORT INFORMATION
  Report Type: 
  Country: None (occurrence: None)
  Receive Date: 20071120
  Receipt Date: 20061002
  Transmission Date: 20080405
  Serious: No
  Sender: FDA-Public Use
  Company Number: US-BRISTOL-MYERS SQUIBB COMPANY-13527296

PATIENT
  Age: 68 Year
  Sex: Male
  Weight: 77 kg

DRUGS (1)
  1. AVALIDE [Suspect]
     Indication: HYPERTENSION
     Route: 048
     Dates: start: 20060401

REACTIONS (2)
  - BLOOD PRESSURE INCREASED [None]
  - DRUG INEFFECTIVE [None]
